FAERS Safety Report 22217991 (Version 3)
Quarter: 2023Q2

REPORT INFORMATION
  Report Type: Spontaneous
  Country: US (occurrence: US)
  Receive Date: 20230417
  Receipt Date: 20230510
  Transmission Date: 20230722
  Serious: No
  Sender: FDA-Public Use
  Company Number: US-BRISTOL-MYERS SQUIBB COMPANY-2023-053548

PATIENT
  Age: 54 Year
  Sex: Male

DRUGS (1)
  1. POMALYST [Suspect]
     Active Substance: POMALIDOMIDE
     Indication: Kaposi^s sarcoma
     Route: 048
     Dates: start: 20230327

REACTIONS (11)
  - Nausea [Unknown]
  - Vomiting [Unknown]
  - Pain [Unknown]
  - Fatigue [Unknown]
  - Tremor [Unknown]
  - Weight decreased [Unknown]
  - Dysphagia [Unknown]
  - Brain fog [Unknown]
  - Visual impairment [Unknown]
  - Stomatitis [Unknown]
  - Oral pain [Unknown]
